FAERS Safety Report 25961279 (Version 1)
Quarter: 2025Q4

REPORT INFORMATION
  Report Type: Spontaneous
  Country: JP (occurrence: JP)
  Receive Date: 20251027
  Receipt Date: 20251027
  Transmission Date: 20260118
  Serious: Yes (Hospitalization, Disabling, Other)
  Sender: STRIDES
  Company Number: JP-STRIDES ARCOLAB LIMITED-2025SP013334

PATIENT
  Age: 57 Year
  Sex: Female

DRUGS (5)
  1. OLANZAPINE [Interacting]
     Active Substance: OLANZAPINE
     Indication: Schizoaffective disorder
     Dosage: 5 MILLIGRAM
     Route: 065
  2. OLANZAPINE [Interacting]
     Active Substance: OLANZAPINE
     Dosage: 20 MILLIGRAM, DOSE INCREASED
     Route: 065
  3. NAPROXEN [Suspect]
     Active Substance: NAPROXEN
     Indication: Pyrexia
     Dosage: UNK
     Route: 065
  4. HALOPERIDOL [Interacting]
     Active Substance: HALOPERIDOL
     Indication: Hallucination
     Dosage: AS NEEDED
     Route: 042
  5. HALOPERIDOL [Interacting]
     Active Substance: HALOPERIDOL
     Indication: Delusion

REACTIONS (4)
  - Malignant catatonia [Recovered/Resolved]
  - Drug interaction [Unknown]
  - Drug ineffective for unapproved indication [Unknown]
  - Off label use [Unknown]
